FAERS Safety Report 9996849 (Version 1)
Quarter: 2014Q1

REPORT INFORMATION
  Report Type: Spontaneous
  Country: US (occurrence: US)
  Receive Date: 20140311
  Receipt Date: 20140311
  Transmission Date: 20141002
  Serious: No
  Sender: FDA-Public Use
  Company Number: US-GLAXOSMITHKLINE-A1031074A

PATIENT
  Age: 69 Year
  Sex: Female

DRUGS (1)
  1. NICORETTE WHITE ICE OTC 4MG [Suspect]
     Indication: EX-TOBACCO USER
     Dates: start: 20130701

REACTIONS (4)
  - Joint swelling [Not Recovered/Not Resolved]
  - Nausea [Recovered/Resolved]
  - Feeling abnormal [Recovered/Resolved]
  - Headache [Recovered/Resolved]
